FAERS Safety Report 5674956-3 (Version None)
Quarter: 2008Q2

REPORT INFORMATION
  Report Type: 
  Country: None (occurrence: None)
  Receive Date: 20080303
  Receipt Date: 20070827
  Transmission Date: 20081010
  Serious: Yes (Life-Threatening, Hospitalization)
  Sender: FDA-Public Use
  Company Number: RB-7799-2007

PATIENT

DRUGS (1)
  1. SUBOXONE [Suspect]
     Dosage: 0.25 MG TRANSPLACENTAL
     Route: 064
     Dates: start: 20070501

REACTIONS (1)
  - RESPIRATORY DEPRESSION [None]
